FAERS Safety Report 6890449-X (Version None)
Quarter: 2010Q3

REPORT INFORMATION
  Report Type: 
  Country: None (occurrence: None)
  Receive Date: 20100731
  Receipt Date: 20081029
  Transmission Date: 20110219
  Serious: No
  Sender: FDA-Public Use
  Company Number: US-PFIZER INC-2008062397

PATIENT
  Sex: Female
  Weight: 75.75 kg

DRUGS (6)
  1. LIPITOR [Suspect]
     Indication: BLOOD CHOLESTEROL ABNORMAL
     Route: 048
     Dates: start: 20080710, end: 20080723
  2. LIPITOR [Suspect]
     Indication: HYPERLIPIDAEMIA
  3. VALSARTAN [Concomitant]
  4. NORVASC [Concomitant]
     Dates: start: 20050101
  5. METFORMIN HCL [Concomitant]
     Dates: start: 20051201
  6. DIOVAN HCT [Concomitant]
     Dates: start: 20050101

REACTIONS (1)
  - HEADACHE [None]
